FAERS Safety Report 21310154 (Version 2)
Quarter: 2022Q3

REPORT INFORMATION
  Report Type: Spontaneous
  Country: CA (occurrence: CA)
  Receive Date: 20220909
  Receipt Date: 20220915
  Transmission Date: 20221027
  Serious: Yes (Other)
  Sender: FDA-Public Use
  Company Number: CA-CELLTRION INC.-2022CA014447

PATIENT
  Age: 38 Year
  Sex: Female

DRUGS (2)
  1. INFLECTRA [Suspect]
     Active Substance: INFLIXIMAB-DYYB
     Indication: Crohn^s disease
     Dosage: 300 MG, EVERY 8 WEEK
     Dates: start: 20220825
  2. PREDNISONE [Concomitant]
     Active Substance: PREDNISONE
     Dosage: UNK

REACTIONS (7)
  - Haematochezia [Unknown]
  - Mucous stools [Unknown]
  - Arthropathy [Unknown]
  - Decreased appetite [Unknown]
  - Off label use [Unknown]
  - Inappropriate schedule of product administration [Unknown]
  - Condition aggravated [Unknown]

NARRATIVE: CASE EVENT DATE: 20220101
